FAERS Safety Report 7624494-3 (Version None)
Quarter: 2011Q3

REPORT INFORMATION
  Report Type: 
  Country: None (occurrence: None)
  Receive Date: 20110720
  Receipt Date: 20110718
  Transmission Date: 20111222
  Serious: Yes (Other)
  Sender: FDA-Public Use
  Company Number: RO-PFIZER INC-2011154085

PATIENT
  Age: 50 Year
  Sex: Male

DRUGS (3)
  1. FENOFIBRATE [Concomitant]
     Indication: HYPERLIPIDAEMIA
     Dosage: 160 MG, UNK
     Route: 048
     Dates: start: 20100101
  2. ASPIRIN [Concomitant]
     Indication: AORTIC ARTERIOSCLEROSIS
     Dosage: 100 MG, UNK
     Route: 048
     Dates: start: 20100101
  3. ATORVASTATIN CALCIUM [Suspect]
     Indication: HYPERLIPIDAEMIA
     Dosage: 40 MG, UNK
     Route: 048
     Dates: start: 20100101

REACTIONS (1)
  - HYPOCALCAEMIA [None]
